FAERS Safety Report 20538194 (Version 1)
Quarter: 2022Q1

REPORT INFORMATION
  Report Type: Spontaneous
  Country: NL (occurrence: NL)
  Receive Date: 20220302
  Receipt Date: 20220302
  Transmission Date: 20220424
  Serious: Yes (Hospitalization, Disabling)
  Sender: FDA-Public Use
  Company Number: None

PATIENT
  Age: 47 Year
  Sex: Female
  Weight: 85 kg

DRUGS (8)
  1. HALDOL [Suspect]
     Active Substance: HALOPERIDOL
     Indication: Mood swings
     Route: 065
     Dates: start: 1992
  2. HALDOL [Suspect]
     Active Substance: HALOPERIDOL
     Route: 065
     Dates: start: 1988
  3. BROMPERIDOL [Suspect]
     Active Substance: BROMPERIDOL
     Indication: Product used for unknown indication
     Dosage: DROPLET SOLUTION
     Route: 065
     Dates: start: 1992
  4. ZUCLOPENTHIXOL [Suspect]
     Active Substance: ZUCLOPENTHIXOL
     Indication: Mood swings
     Route: 065
     Dates: start: 1992
  5. PIMOZIDE [Suspect]
     Active Substance: PIMOZIDE
     Indication: Mood swings
     Dosage: 200 IN 3 WEEKS; MEDICINE PRESCRIBED BY DOCTOR: YES
     Route: 065
     Dates: start: 1992
  6. PIMOZIDE [Suspect]
     Active Substance: PIMOZIDE
     Route: 065
     Dates: start: 1988
  7. OLANZAPINE [Suspect]
     Active Substance: OLANZAPINE
     Indication: Mood swings
     Route: 065
     Dates: start: 1988
  8. RISPERIDONE [Concomitant]
     Active Substance: RISPERIDONE
     Dosage: VACCINE VERY STRONG FOR A YOUNG, LIGHT-WEIGHTED WOMAN
     Route: 065

REACTIONS (2)
  - Deafness [Not Recovered/Not Resolved]
  - Hair growth abnormal [Recovering/Resolving]

NARRATIVE: CASE EVENT DATE: 20150204
